FAERS Safety Report 6723722-6 (Version None)
Quarter: 2010Q2

REPORT INFORMATION
  Report Type: 
  Country: None (occurrence: None)
  Receive Date: 20100513
  Receipt Date: 20100504
  Transmission Date: 20101027
  Serious: Yes (Hospitalization)
  Sender: FDA-Public Use
  Company Number: FR-BAXTER-2010BH012633

PATIENT
  Age: 19 Month
  Sex: Female
  Weight: 10 kg

DRUGS (6)
  1. ENDOXAN BAXTER [Suspect]
     Indication: BRAIN NEOPLASM MALIGNANT
     Route: 042
     Dates: start: 20080821, end: 20080822
  2. VINCRISTINE SULFATE [Suspect]
     Indication: BRAIN NEOPLASM MALIGNANT
     Route: 042
     Dates: start: 20080821, end: 20080821
  3. DOXORUBICIN HCL [Suspect]
     Indication: BRAIN NEOPLASM MALIGNANT
     Route: 042
     Dates: start: 20080821, end: 20080823
  4. NEUPOGEN [Concomitant]
     Indication: DRUG USE FOR UNKNOWN INDICATION
     Route: 065
     Dates: start: 20080828, end: 20080828
  5. NEUPOGEN [Concomitant]
     Route: 065
     Dates: start: 20080901, end: 20080901
  6. NEUPOGEN [Concomitant]
     Route: 065
     Dates: start: 20080905, end: 20080901

REACTIONS (3)
  - PNEUMOCYSTIS JIROVECI INFECTION [None]
  - RESPIRATORY DISTRESS [None]
  - SEPTIC SHOCK [None]
